FAERS Safety Report 4587100-0 (Version None)
Quarter: 2005Q1

REPORT INFORMATION
  Report Type: 
  Country: None (occurrence: None)
  Receive Date: 20050214
  Receipt Date: 20050204
  Transmission Date: 20050727
  Serious: Yes (Death)
  Sender: FDA-Public Use
  Company Number: 10053

PATIENT
  Age: 88 Year
  Sex: Female

DRUGS (13)
  1. METHOTREXATE [Suspect]
     Indication: RHEUMATOID ARTHRITIS
     Dosage: 10 MG WEEKLY PO
     Route: 048
     Dates: end: 20041230
  2. CEFUROXIME [Concomitant]
  3. ALENDRONATE SODIUM [Concomitant]
  4. LANSOPRAZOLE [Concomitant]
  5. HYDROCORTISONE [Concomitant]
  6. LEVOTHYROXINE SODIUM [Concomitant]
  7. INDAPAMIDE [Concomitant]
  8. PERINDOPRIL [Concomitant]
  9. ETIDRONIC ACID [Concomitant]
  10. ACETYLSALICYLIC ACID [Concomitant]
  11. FOLIC ACID [Concomitant]
  12. PREDNISOLONE [Concomitant]
  13. AMOXICILLIN [Concomitant]

REACTIONS (3)
  - LOWER RESPIRATORY TRACT INFECTION [None]
  - NEUTROPENIC SEPSIS [None]
  - SEPTIC SHOCK [None]
